FAERS Safety Report 9836494 (Version 2)
Quarter: 2014Q1

REPORT INFORMATION
  Report Type: Report from Study
  Country: US (occurrence: US)
  Receive Date: 20140123
  Receipt Date: 20140226
  Transmission Date: 20141002
  Serious: Yes (Hospitalization)
  Sender: FDA-Public Use
  Company Number: US-ALEXION-A201303588

PATIENT
  Age: 23 Year
  Sex: Female
  Weight: 106 kg

DRUGS (1)
  1. ECULIZUMAB [Suspect]
     Indication: HAEMOLYTIC URAEMIC SYNDROME

REACTIONS (1)
  - Oesophageal candidiasis [Recovered/Resolved]
